FAERS Safety Report 10422674 (Version 4)
Quarter: 2014Q3

REPORT INFORMATION
  Report Type: Report from Study
  Country: US (occurrence: US)
  Receive Date: 20140902
  Receipt Date: 20140919
  Transmission Date: 20150326
  Serious: Yes (Hospitalization, Other)
  Sender: FDA-Public Use
  Company Number: PHHY2014US029003

PATIENT
  Age: 45 Year
  Sex: Female
  Weight: 68.27 kg

DRUGS (34)
  1. LIORESAL [Suspect]
     Active Substance: BACLOFEN
     Indication: MUSCLE SPASTICITY
     Dosage: 409.1 UG, DAILY
     Route: 037
  2. BACLOFEN. [Suspect]
     Active Substance: BACLOFEN
     Dosage: 1 TID AND Q8H PRN
     Route: 048
  3. VITAMIIN C [Suspect]
     Active Substance: ASCORBIC ACID
     Dosage: 3000 MG, DAILY
     Route: 048
  4. LOVENOX [Suspect]
     Active Substance: ENOXAPARIN SODIUM
     Dosage: UNK UKN, UNK
  5. LIORESAL [Suspect]
     Active Substance: BACLOFEN
     Dosage: DOSE WAS INCREASED ABOUT 10 PERCENT
     Route: 037
  6. LIORESAL [Suspect]
     Active Substance: BACLOFEN
     Dosage: DOSE WAS INCREASED 31 PERCENT
     Route: 037
  7. MIRALAX [Suspect]
     Active Substance: POLYETHYLENE GLYCOL 3350
     Dosage: AS NEEDED EVERY OTHER DAY
     Route: 048
  8. NYSTATIN. [Suspect]
     Active Substance: NYSTATIN
     Dosage: 2 DF, DAILY
  9. LIORESAL [Suspect]
     Active Substance: BACLOFEN
     Dosage: 625.9 UG, DAY
     Route: 037
  10. LIORESAL [Suspect]
     Active Substance: BACLOFEN
     Dosage: 400 UG, PER DAY
     Route: 037
  11. OXYCODONE AND ACETAMINOPHEN [Suspect]
     Active Substance: ACETAMINOPHEN\OXYCODONE\OXYCODONE HYDROCHLORIDE
     Indication: PAIN
     Dosage: 1 DF, Q4H
     Route: 048
  12. LIORESAL [Suspect]
     Active Substance: BACLOFEN
     Dosage: 525 UG, A DAY
     Route: 037
  13. LIORESAL [Suspect]
     Active Substance: BACLOFEN
     Dosage: 524.6 UG, DAY
     Route: 037
     Dates: start: 20140612
  14. OXYBUTYNIN [Suspect]
     Active Substance: OXYBUTYNIN
     Dosage: 2 DF, DAILY
     Route: 048
  15. ZOLOFT [Suspect]
     Active Substance: SERTRALINE HYDROCHLORIDE
     Dosage: DAILY
     Route: 048
  16. LIORESAL [Suspect]
     Active Substance: BACLOFEN
     Dosage: 399.9 UG, DAY
     Route: 037
     Dates: start: 20140418
  17. TYLENOL [Suspect]
     Active Substance: ACETAMINOPHEN
     Dosage: UNK UKN, PRN
     Route: 048
  18. ENEMEEZ [Suspect]
     Active Substance: DOCUSATE SODIUM
     Dosage: UNK UKN, DAILY
     Route: 054
  19. LIORESAL [Suspect]
     Active Substance: BACLOFEN
     Dosage: 400 UG,DAY
     Route: 037
     Dates: start: 20140721
  20. LIORESAL [Suspect]
     Active Substance: BACLOFEN
     Dosage: 350 UG, PER DAY
     Route: 037
     Dates: start: 20140303
  21. LIORESAL [Suspect]
     Active Substance: BACLOFEN
     Dosage: DOSE WAS AGAIN INCREASED ABOUT 7 PERCENT
     Route: 037
  22. CEFDINIR. [Suspect]
     Active Substance: CEFDINIR
     Dosage: 2 DF, DAILY
     Route: 048
  23. ZOFRAN [Suspect]
     Active Substance: ONDANSETRON HYDROCHLORIDE
     Dosage: UNK UKN, PRN
     Route: 048
  24. NEXIUM I.V. [Suspect]
     Active Substance: ESOMEPRAZOLE SODIUM
     Dosage: IN THE MORNINGS
  25. BACITRACIN ZINC. [Suspect]
     Active Substance: BACITRACIN ZINC
     Dosage: 1 DF, BID
     Route: 061
  26. FLONASE [Suspect]
     Active Substance: FLUTICASONE PROPIONATE
     Dosage: UNK UKN, UNK
  27. FLORINEF ACETATE [Suspect]
     Active Substance: FLUDROCORTISONE ACETATE
     Dosage: UNK UKN, UNK
     Route: 048
  28. LIDODERM [Suspect]
     Active Substance: LIDOCAINE
     Dosage: 2 PATCHES ON BACK AT NIGHT
  29. XARELTO [Suspect]
     Active Substance: RIVAROXABAN
     Dosage: UNK UKN, UNK
     Route: 048
  30. DOCUSATE SODIUM. [Suspect]
     Active Substance: DOCUSATE SODIUM
     Indication: CONSTIPATION
     Dosage: 1 DF, BID
  31. LIORESAL [Suspect]
     Active Substance: BACLOFEN
     Dosage: 440.4 UG, DAILY
     Route: 037
     Dates: start: 20130926
  32. LIORESAL [Suspect]
     Active Substance: BACLOFEN
     Dosage: 524.6 UG, DAY
     Route: 037
     Dates: start: 20140714
  33. MIDODRINE [Suspect]
     Active Substance: MIDODRINE
     Dosage: 3 DF, DAILY
     Route: 048
  34. LORTAB [Suspect]
     Active Substance: ACETAMINOPHEN\HYDROCODONE BITARTRATE
     Dosage: AS NEEDED, UP TO 4 TIMES A DAY

REACTIONS (19)
  - Homocysteine urine present [Recovered/Resolved]
  - Blood glucose increased [Recovered/Resolved]
  - Mean platelet volume increased [Recovered/Resolved]
  - Prothrombin time prolonged [Recovered/Resolved]
  - Urine leukocyte esterase positive [Recovered/Resolved]
  - Deep vein thrombosis [Recovered/Resolved]
  - Constipation [Recovered/Resolved]
  - Red blood cells urine positive [Recovered/Resolved]
  - Gait disturbance [Recovered/Resolved]
  - No therapeutic response [Recovered/Resolved]
  - Underdose [Recovered/Resolved]
  - Proteinuria [Recovered/Resolved]
  - Specific gravity urine abnormal [Recovered/Resolved]
  - Hypertonia [Recovered/Resolved]
  - Therapeutic response decreased [Recovered/Resolved]
  - Clonus [Recovered/Resolved]
  - Urinary tract infection [Recovered/Resolved]
  - Muscle spasticity [Recovered/Resolved]
  - Muscle spasms [Recovered/Resolved]

NARRATIVE: CASE EVENT DATE: 20140225
